FAERS Safety Report 9223404 (Version 1)
Quarter: 2013Q2

REPORT INFORMATION
  Report Type: Report from Study
  Country: BR (occurrence: BR)
  Receive Date: 20130410
  Receipt Date: 20130410
  Transmission Date: 20140414
  Serious: Yes (Death, Hospitalization)
  Sender: FDA-Public Use
  Company Number: BR-ROCHE-1159894

PATIENT
  Age: 63 Year
  Sex: Female
  Weight: 61.8 kg

DRUGS (10)
  1. RITUXIMAB [Suspect]
     Indication: B-CELL LYMPHOMA
     Dosage: LAST DOSE ON 12/NOV/2012, DOSE TAKEN 603.75 MG
     Route: 042
     Dates: start: 20121112
  2. CYCLOPHOSPHAMIDE [Suspect]
     Indication: B-CELL LYMPHOMA
     Route: 065
  3. DOXORUBICIN [Suspect]
     Indication: B-CELL LYMPHOMA
     Route: 065
  4. VINCRISTINE [Suspect]
     Indication: B-CELL LYMPHOMA
     Route: 065
  5. PREDNISONE [Suspect]
     Indication: B-CELL LYMPHOMA
     Route: 065
  6. ONDANSETRON [Concomitant]
     Route: 065
     Dates: start: 20121112, end: 20121112
  7. DEXAMETHASONE [Concomitant]
     Route: 065
     Dates: start: 20121112, end: 20121112
  8. PARACETAMOL [Concomitant]
     Route: 065
     Dates: start: 20121112, end: 20121112
  9. DIPHENHYDRAMINE [Concomitant]
     Route: 065
     Dates: start: 20121112, end: 20121112
  10. RANITIDINE [Concomitant]
     Route: 065
     Dates: start: 20121112, end: 20121112

REACTIONS (1)
  - Acute respiratory failure [Fatal]
